FAERS Safety Report 23915011 (Version 1)
Quarter: 2024Q2

REPORT INFORMATION
  Report Type: Spontaneous
  Country: US (occurrence: None)
  Receive Date: 20240527
  Receipt Date: 20240527
  Transmission Date: 20240716
  Serious: Yes (Other)
  Sender: FDA-Public Use
  Company Number: None

PATIENT
  Age: 73 Year
  Sex: Female
  Weight: 64.35 kg

DRUGS (1)
  1. ZEPBOUND [Suspect]
     Active Substance: TIRZEPATIDE
     Indication: Weight control
     Dates: start: 20240517

REACTIONS (3)
  - Fatigue [None]
  - Loss of personal independence in daily activities [None]
  - Feeling abnormal [None]

NARRATIVE: CASE EVENT DATE: 20240517
